FAERS Safety Report 7185197-5 (Version None)
Quarter: 2010Q4

REPORT INFORMATION
  Report Type: 
  Country: None (occurrence: None)
  Receive Date: 20101222
  Receipt Date: 20100601
  Transmission Date: 20110411
  Serious: No
  Sender: FDA-Public Use
  Company Number: US-AMGEN-TCS415850

PATIENT

DRUGS (1)
  1. ENBREL [Suspect]
     Indication: RHEUMATOID ARTHRITIS
     Dosage: 50 MG, QWK
     Route: 058
     Dates: start: 20100313, end: 20100424

REACTIONS (7)
  - BLOOD UREA INCREASED [None]
  - JOINT SWELLING [None]
  - LYMPHOCYTE COUNT INCREASED [None]
  - NASOPHARYNGITIS [None]
  - PARAESTHESIA [None]
  - RHEUMATOID ARTHRITIS [None]
  - WHITE BLOOD CELL COUNT DECREASED [None]
